FAERS Safety Report 4370556-6 (Version None)
Quarter: 2004Q2

REPORT INFORMATION
  Report Type: 
  Country: None (occurrence: None)
  Receive Date: 20040528
  Receipt Date: 20040511
  Transmission Date: 20050107
  Serious: Yes (Life-Threatening, Hospitalization)
  Sender: FDA-Public Use
  Company Number: 2004212816US

PATIENT
  Age: 48 Year
  Sex: Female

DRUGS (7)
  1. CELEBREX [Suspect]
     Indication: CERVIX CARCINOMA STAGE II
     Dosage: 400 MG, BID
  2. CLINICAL TRIAL PROCEDURE (CLINICAL TRIAL PROCEDURE) UNKNOWN [Suspect]
     Indication: CERVIX CARCINOMA STAGE II
     Dates: start: 20021209
  3. COMPARATOR-CISPLATIN (CISPLATIN, CISPLATIN) INJECTION [Suspect]
     Indication: CERVIX CARCINOMA STAGE II
  4. METHADONE HCL [Concomitant]
  5. PREMPRO [Concomitant]
  6. TYLENOL [Concomitant]
  7. DARVOCET-N (DEXTROPROXYPHENE) [Concomitant]

REACTIONS (12)
  - ANAEMIA [None]
  - BACK PAIN [None]
  - BACTERIAL INFECTION [None]
  - BLOOD CULTURE POSITIVE [None]
  - BRONCHOALVEOLAR LAVAGE ABNORMAL [None]
  - CHILLS [None]
  - CONDITION AGGRAVATED [None]
  - FUNGAL INFECTION [None]
  - HAND-FOOT-AND-MOUTH DISEASE [None]
  - LUNG INFECTION [None]
  - LUNG NEOPLASM [None]
  - PYREXIA [None]
